FAERS Safety Report 23225927 (Version 1)
Quarter: 2023Q4

REPORT INFORMATION
  Report Type: Spontaneous
  Country: US (occurrence: US)
  Receive Date: 20231124
  Receipt Date: 20231124
  Transmission Date: 20240109
  Serious: Yes (Other)
  Sender: FDA-Public Use
  Company Number: US-GENEYORK-2023PPLIT00038

PATIENT
  Age: 5 Year
  Sex: Male

DRUGS (3)
  1. PREDNISONE [Suspect]
     Active Substance: PREDNISONE
     Indication: Nephrotic syndrome
     Route: 048
  2. PREDNISONE [Suspect]
     Active Substance: PREDNISONE
     Indication: Steroid dependence
     Route: 048
  3. MYCOPHENOLATE MOFETIL [Concomitant]
     Active Substance: MYCOPHENOLATE MOFETIL
     Route: 065

REACTIONS (3)
  - Steroid dependence [Recovered/Resolved]
  - Affective disorder [Recovered/Resolved]
  - Product use in unapproved indication [Unknown]
